FAERS Safety Report 8968103 (Version 2)
Quarter: 2013Q1

REPORT INFORMATION
  Report Type: Spontaneous
  Country: CA (occurrence: CA)
  Receive Date: 20121217
  Receipt Date: 20130110
  Transmission Date: 20140127
  Serious: Yes (Death, Other)
  Sender: FDA-Public Use
  Company Number: CA-BAXTER-2012BAX026992

PATIENT
  Age: 96 Year
  Sex: Male

DRUGS (2)
  1. DIANEAL PD4 SOLUTION WITH 1.5% DEXTROSE AND 2.5 MEQ/L CALCIUM [Suspect]
     Indication: HYPERTENSION
     Route: 033
  2. DIANEAL PD4 SOLUTION WITH 2.5% DEXTROSE AND 2.5 MEQ/L CALCIUM [Suspect]
     Indication: HYPERTENSION
     Route: 033

REACTIONS (8)
  - Death [Fatal]
  - Lip and/or oral cavity cancer [Unknown]
  - Malignant neoplasm progression [Unknown]
  - Bone cancer [Unknown]
  - General physical health deterioration [Unknown]
  - Diet refusal [Unknown]
  - Cough [Unknown]
  - Fluid retention [Unknown]
